FAERS Safety Report 19309443 (Version 1)
Quarter: 2021Q2

REPORT INFORMATION
  Report Type: Spontaneous
  Country: US (occurrence: US)
  Receive Date: 20210526
  Receipt Date: 20210526
  Transmission Date: 20210717
  Serious: No
  Sender: FDA-Public Use
  Company Number: US-PFIZER INC-2021251022

PATIENT
  Age: 34 Year
  Sex: Male

DRUGS (1)
  1. EUCRISA [Suspect]
     Active Substance: CRISABOROLE
     Dosage: UNK [USE THE TOPICAL CREAM MORE FREQUENTLY]
     Route: 061

REACTIONS (1)
  - Condition aggravated [Unknown]
